FAERS Safety Report 8882286 (Version 7)
Quarter: 2013Q2

REPORT INFORMATION
  Report Type: Spontaneous
  Country: US (occurrence: US)
  Receive Date: 20121102
  Receipt Date: 20130513
  Transmission Date: 20140414
  Serious: Yes (Hospitalization, Disabling, Other)
  Sender: FDA-Public Use
  Company Number: US-009507513-1210USA010386

PATIENT
  Sex: Female
  Weight: 76.64 kg

DRUGS (5)
  1. FOSAMAX [Suspect]
     Indication: OSTEOPOROSIS
     Dosage: 10 MG, QD
     Route: 048
  2. FOSAMAX [Suspect]
     Dosage: 70 MG, UNK
     Route: 048
     Dates: end: 2008
  3. OS-CAL D [Concomitant]
     Dosage: 500 MG, TID
  4. NASONEX [Concomitant]
     Indication: RHINITIS ALLERGIC
  5. MEDENT LD [Concomitant]
     Indication: RHINITIS ALLERGIC

REACTIONS (29)
  - Femur fracture [Not Recovered/Not Resolved]
  - Femur fracture [Not Recovered/Not Resolved]
  - Femur fracture [Unknown]
  - Intramedullary rod insertion [Unknown]
  - Cholecystectomy [Unknown]
  - Biopsy breast [Unknown]
  - Osteoporosis [Not Recovered/Not Resolved]
  - Stress fracture [Not Recovered/Not Resolved]
  - Low turnover osteopathy [Not Recovered/Not Resolved]
  - Internal fixation of fracture [Unknown]
  - Femur fracture [Unknown]
  - Insulin-requiring type 2 diabetes mellitus [Unknown]
  - Dysmorphism [Unknown]
  - Hypercholesterolaemia [Unknown]
  - Labile blood pressure [Unknown]
  - Hypertension [Unknown]
  - Osteoarthritis [Unknown]
  - White blood cell count increased [Unknown]
  - Hypertensive heart disease [Unknown]
  - Tendonitis [Unknown]
  - Carotid bruit [Unknown]
  - Cardiac murmur [Unknown]
  - Cerumen impaction [Unknown]
  - Inappropriate schedule of drug administration [Unknown]
  - Blood glucose decreased [Unknown]
  - Musculoskeletal discomfort [Unknown]
  - Constipation [Unknown]
  - Abdominal distension [Unknown]
  - Drug ineffective [Unknown]
